FAERS Safety Report 11703136 (Version 1)
Quarter: 2015Q4

REPORT INFORMATION
  Report Type: Spontaneous
  Country: US (occurrence: US)
  Receive Date: 20151105
  Receipt Date: 20151105
  Transmission Date: 20160304
  Serious: No
  Sender: FDA-Public Use
  Company Number: US-AMGEN-USASP2015060807

PATIENT
  Age: 73 Year
  Sex: Female
  Weight: 78.5 kg

DRUGS (22)
  1. ENGERIX-B [Concomitant]
     Active Substance: HEPATITIS B VIRUS SUBTYPE ADW2 HBSAG SURFACE PROTEIN ANTIGEN
     Dosage: 40 MUG, UNK
     Route: 030
     Dates: start: 20150514
  2. OXYGEN. [Concomitant]
     Active Substance: OXYGEN
     Dosage: 2 L, AS NECESSARY
     Route: 045
     Dates: start: 20150501
  3. TYLENOL EXTRA STRENGTH [Concomitant]
     Active Substance: ACETAMINOPHEN
     Dosage: 1000 MG, AS NECESSARY/DIALYSIS
     Route: 048
     Dates: start: 20150501
  4. ALBUTEROL                          /00139501/ [Concomitant]
     Active Substance: ALBUTEROL
     Dosage: 2 DF, AS NECESSARY
     Dates: start: 20150530
  5. HEPARIN [Concomitant]
     Active Substance: HEPARIN SODIUM
     Dosage: 10000 UNIT, UNK
     Dates: start: 20150501
  6. OMEPRAZOLE. [Concomitant]
     Active Substance: OMEPRAZOLE
     Dosage: 20 MG, QD
     Route: 048
     Dates: start: 20150530
  7. ALBUMIN HUMAN [Concomitant]
     Active Substance: ALBUMIN (HUMAN)
     Dosage: 50 UNK, AS NECESSARY
     Route: 042
     Dates: start: 20150610
  8. SODIUM CHLORIDE. [Concomitant]
     Active Substance: SODIUM CHLORIDE
     Dosage: 200 UNK, AS NECESSARY
     Route: 042
  9. ARANESP [Suspect]
     Active Substance: DARBEPOETIN ALFA
     Indication: PRODUCT USED FOR UNKNOWN INDICATION
     Dosage: 25 MUG, QWK
     Route: 042
     Dates: start: 20150513
  10. TYLENOL [Concomitant]
     Active Substance: ACETAMINOPHEN
     Dosage: 325 MG, AS NECESSARY
     Route: 048
     Dates: start: 20150530
  11. HUMALOG [Concomitant]
     Active Substance: INSULIN LISPRO
     Dosage: 0 UNIT, UNK
     Route: 058
     Dates: start: 20150530
  12. COUMADIN [Concomitant]
     Active Substance: WARFARIN SODIUM
     Dosage: 3.5 MG, QD
     Route: 048
     Dates: start: 20150530
  13. FERRLECIT                          /00023541/ [Concomitant]
     Dosage: 125 MG, QMO
     Route: 042
     Dates: start: 20150610
  14. BACTROBAN [Concomitant]
     Active Substance: MUPIROCIN\MUPIROCIN CALCIUM
     Dosage: 1 DROP, 3 TIMES/WK
     Route: 061
     Dates: start: 20150515
  15. TUBERSOL [Concomitant]
     Active Substance: TUBERCULIN PURIFIED PROTEIN DERIVATIVE
     Dosage: 0.1 ML, UNK
     Route: 023
     Dates: start: 20150514
  16. ARANESP [Suspect]
     Active Substance: DARBEPOETIN ALFA
     Dosage: UNK
     Route: 042
  17. VITAMIN D2 [Concomitant]
     Active Substance: ERGOCALCIFEROL
     Dosage: 50000 IU, QMO
     Route: 048
     Dates: start: 20150529
  18. LOMOTIL [Concomitant]
     Active Substance: ATROPINE SULFATE\DIPHENOXYLATE HYDROCHLORIDE
     Dosage: 2 MG, AS NECESSARY
     Route: 048
     Dates: start: 20150530
  19. NORCO [Concomitant]
     Active Substance: ACETAMINOPHEN\HYDROCODONE BITARTRATE
     Dosage: `5 MG, AS NECESSARY
     Route: 048
     Dates: start: 20150530
  20. LOVASTATIN. [Concomitant]
     Active Substance: LOVASTATIN
     Dosage: 10 MG, QD
     Route: 048
     Dates: start: 20150530
  21. COREG [Concomitant]
     Active Substance: CARVEDILOL
     Dosage: 25 MG, BID
     Route: 048
     Dates: start: 20150530
  22. LEVEMIR [Concomitant]
     Active Substance: INSULIN DETEMIR
     Dosage: 24 UNIT, QD
     Route: 058
     Dates: start: 20150530

REACTIONS (1)
  - Incorrect product storage [Unknown]
